FAERS Safety Report 16763331 (Version 1)
Quarter: 2019Q3

REPORT INFORMATION
  Report Type: Spontaneous
  Country: CA (occurrence: CA)
  Receive Date: 20190902
  Receipt Date: 20190902
  Transmission Date: 20191005
  Serious: Yes (Other)
  Sender: FDA-Public Use
  Company Number: CA-BAXTER-2019BAX016954

PATIENT
  Age: 56 Year
  Sex: Male

DRUGS (6)
  1. PROCYTOX (CYCLOPHOSPHAMIDE) 2000MG/VIAL [Suspect]
     Active Substance: CYCLOPHOSPHAMIDE
     Indication: LYMPHOMA
     Dosage: DOSAGE FORM: NOT SPECIFIED
     Route: 042
  2. VINCRISTINE [Suspect]
     Active Substance: VINCRISTINE
     Indication: LYMPHOMA
     Route: 065
  3. FLUDARABINE [Suspect]
     Active Substance: FLUDARABINE PHOSPHATE
     Indication: LYMPHOMA
     Route: 065
  4. TREANDA [Suspect]
     Active Substance: BENDAMUSTINE HYDROCHLORIDE
     Indication: LYMPHOMA
     Dosage: DOSAGE FORM: POWDER FOR SOLUTION INTRAVENOUS, SINGLE USE VIAL I.V. INFUSION ONLY
     Route: 042
  5. RITUXAN [Suspect]
     Active Substance: RITUXIMAB
     Indication: LYMPHOMA
     Dosage: DOSAGE FORM: SOLUTION INTRAVENOUS
     Route: 042
  6. PREDNISONE. [Suspect]
     Active Substance: PREDNISONE
     Indication: LYMPHOMA
     Dosage: DOSAGE FORM: NOT SPECIFIED
     Route: 065

REACTIONS (1)
  - Immune thrombocytopenic purpura [Unknown]
